FAERS Safety Report 10079477 (Version 2)
Quarter: 2014Q2

REPORT INFORMATION
  Report Type: Spontaneous
  Country: US (occurrence: US)
  Receive Date: 20140415
  Receipt Date: 20140415
  Transmission Date: 20141212
  Serious: Yes (Hospitalization, Other)
  Sender: FDA-Public Use
  Company Number: US-CELGENEUS-163-21880-14033202

PATIENT
  Age: 83 Year
  Sex: Male

DRUGS (2)
  1. REVLIMID [Suspect]
     Indication: LYMPHOMA
     Dosage: 25 MILLIGRAM
     Route: 048
     Dates: start: 20140206
  2. RITUXAN [Concomitant]
     Indication: PRODUCT USED FOR UNKNOWN INDICATION
     Route: 065

REACTIONS (3)
  - Toxicity to various agents [Unknown]
  - Asthenia [Unknown]
  - Malaise [Unknown]
